FAERS Safety Report 6729971-5 (Version None)
Quarter: 2010Q2

REPORT INFORMATION
  Report Type: 
  Country: None (occurrence: None)
  Receive Date: 20100513
  Receipt Date: 20100430
  Transmission Date: 20101027
  Serious: Yes (Death, Life-Threatening, Hospitalization)
  Sender: FDA-Public Use
  Company Number: 2009AL000415

PATIENT
  Age: 73 Year
  Sex: Male
  Weight: 91 kg

DRUGS (5)
  1. PRALATREXATE (PRALATREXATE) [Suspect]
     Indication: BLADDER CANCER
     Dosage: 190 MG/M**2, QOW;IV
     Route: 042
     Dates: start: 20081211, end: 20081211
  2. FOLIC ACID [Concomitant]
  3. OXYCODONE [Concomitant]
  4. CYANOCOBALAMIN [Concomitant]
  5. LOW MOLECULAR WEIGHT HEPARIN [Concomitant]

REACTIONS (10)
  - BONE MARROW FAILURE [None]
  - COMA [None]
  - DECREASED APPETITE [None]
  - FATIGUE [None]
  - GENERAL PHYSICAL HEALTH DETERIORATION [None]
  - HAEMATURIA [None]
  - MOUTH HAEMORRHAGE [None]
  - MUCOSAL INFLAMMATION [None]
  - RENAL FAILURE [None]
  - STAPHYLOCOCCAL INFECTION [None]
